FAERS Safety Report 5629027-9 (Version None)
Quarter: 2008Q1

REPORT INFORMATION
  Report Type: 
  Country: None (occurrence: None)
  Receive Date: 20080216
  Receipt Date: 20080108
  Transmission Date: 20080703
  Serious: No
  Sender: FDA-Public Use
  Company Number: US-BAXTER-2008BH000010

PATIENT
  Age: 54 Year
  Sex: Male
  Weight: 108 kg

DRUGS (26)
  1. HEPARIN SODIUM [Suspect]
     Indication: THROMBOSIS PROPHYLAXIS
     Route: 042
     Dates: start: 20071226, end: 20071226
  2. HEPARIN SODIUM [Suspect]
     Route: 042
     Dates: start: 20071226, end: 20071226
  3. HEPARIN SODIUM [Suspect]
     Route: 042
     Dates: start: 20071226, end: 20071226
  4. HEPARIN SODIUM [Suspect]
     Route: 042
     Dates: start: 20071226, end: 20071226
  5. HEPARIN SODIUM [Suspect]
     Route: 042
     Dates: start: 20071226, end: 20071226
  6. HEPARIN SODIUM [Suspect]
     Route: 042
     Dates: start: 20071226, end: 20071226
  7. HEPARIN SODIUM [Suspect]
     Route: 042
     Dates: start: 20071228, end: 20071228
  8. HEPARIN SODIUM [Suspect]
     Route: 042
     Dates: start: 20071228, end: 20071228
  9. HEPARIN SODIUM [Suspect]
     Route: 042
     Dates: start: 20071228, end: 20071228
  10. HEPARIN SODIUM [Suspect]
     Route: 042
     Dates: start: 20071228, end: 20071228
  11. HEPARIN SODIUM [Suspect]
     Route: 042
     Dates: start: 20071228, end: 20071228
  12. HEPARIN SODIUM [Suspect]
     Route: 042
     Dates: start: 20071228, end: 20071228
  13. SODIUM CHLORIDE [Concomitant]
     Indication: DRUG USE FOR UNKNOWN INDICATION
     Route: 065
  14. AQUAPHOR                                /USA/ [Concomitant]
     Indication: DRUG USE FOR UNKNOWN INDICATION
     Route: 065
     Dates: start: 20070824
  15. VITAMIN CAP [Concomitant]
     Indication: DRUG USE FOR UNKNOWN INDICATION
     Route: 065
     Dates: start: 20071222
  16. ALBUMIN (HUMAN) [Concomitant]
     Indication: DRUG USE FOR UNKNOWN INDICATION
     Route: 042
     Dates: start: 20071010
  17. MIDODRINE [Concomitant]
     Indication: DRUG USE FOR UNKNOWN INDICATION
     Route: 065
  18. PREGABALIN [Concomitant]
     Indication: DRUG USE FOR UNKNOWN INDICATION
     Dates: start: 20071222
  19. VENOFER [Concomitant]
     Indication: DRUG USE FOR UNKNOWN INDICATION
     Route: 042
     Dates: start: 20071222
  20. CELEXA [Concomitant]
     Indication: DRUG USE FOR UNKNOWN INDICATION
     Route: 048
     Dates: start: 20071222
  21. PRILOSEC [Concomitant]
     Indication: DRUG USE FOR UNKNOWN INDICATION
     Route: 065
     Dates: start: 20071222
  22. FLUDROCORTISONE ACETATE [Concomitant]
     Indication: DRUG USE FOR UNKNOWN INDICATION
     Route: 065
     Dates: start: 20071222
  23. DARVOCET-N 100 [Concomitant]
     Indication: DRUG USE FOR UNKNOWN INDICATION
     Route: 065
     Dates: start: 20071222
  24. COLACE [Concomitant]
     Indication: DRUG USE FOR UNKNOWN INDICATION
     Route: 065
     Dates: start: 20071222
  25. FLEET ENEMA                        /00766901/ [Concomitant]
     Indication: DRUG USE FOR UNKNOWN INDICATION
     Route: 065
     Dates: start: 20071222
  26. PREGABALIN [Concomitant]
     Route: 065
     Dates: start: 20071222

REACTIONS (3)
  - BLOOD PRESSURE DECREASED [None]
  - HEADACHE [None]
  - NAUSEA [None]
